FAERS Safety Report 25088017 (Version 1)
Quarter: 2025Q1

REPORT INFORMATION
  Report Type: Spontaneous
  Country: FR (occurrence: FR)
  Receive Date: 20250318
  Receipt Date: 20250318
  Transmission Date: 20250409
  Serious: Yes (Other)
  Sender: ABBVIE
  Company Number: None

PATIENT
  Age: 54 Year
  Sex: Male

DRUGS (1)
  1. ADALIMUMAB [Suspect]
     Active Substance: ADALIMUMAB
     Indication: Psoriasis
     Dosage: ADALIMUMAB ((MAMMIFERE/HAMSTER/CHO))
     Route: 058
     Dates: start: 20230601, end: 20231201

REACTIONS (2)
  - Diplopia [Not Recovered/Not Resolved]
  - Demyelination [Recovering/Resolving]

NARRATIVE: CASE EVENT DATE: 20230901
